FAERS Safety Report 4875444-4 (Version None)
Quarter: 2006Q1

REPORT INFORMATION
  Report Type: 
  Country: None (occurrence: None)
  Receive Date: 20060104
  Receipt Date: 20051227
  Transmission Date: 20060701
  Serious: Yes (Hospitalization)
  Sender: FDA-Public Use
  Company Number: 218162

PATIENT
  Age: 48 Year
  Sex: Female

DRUGS (1)
  1. RITUXAN [Suspect]
     Indication: GLOMERULONEPHRITIS CHRONIC
     Dosage: 150 MG/M2 INTRAVENOUS
     Route: 042
     Dates: start: 20040911, end: 20040914

REACTIONS (11)
  - AGRANULOCYTOSIS [None]
  - ALBUMINURIA [None]
  - CYTOMEGALOVIRUS INFECTION [None]
  - DIARRHOEA [None]
  - GENERALISED OEDEMA [None]
  - HYPOGAMMAGLOBULINAEMIA [None]
  - KIDNEY TRANSPLANT REJECTION [None]
  - MYELOID MATURATION ARREST [None]
  - PYREXIA [None]
  - URINE OUTPUT DECREASED [None]
  - WEIGHT INCREASED [None]
